FAERS Safety Report 7982909-5 (Version None)
Quarter: 2011Q4

REPORT INFORMATION
  Report Type: 
  Country: None (occurrence: None)
  Receive Date: 20111215
  Receipt Date: 20111205
  Transmission Date: 20120403
  Serious: Yes (Death, Other)
  Sender: FDA-Public Use
  Company Number: PHHY2011US108224

PATIENT
  Age: 21 Year
  Sex: Male

DRUGS (6)
  1. METOPROLOL TARTRATE [Suspect]
  2. BENZODIAZEPINES [Suspect]
  3. ACETYLSALICYLIC ACID SRT [Suspect]
  4. CITALOPRAM [Suspect]
  5. AMLODIPINE BESYLATE AND BENAZEPRIL HCL [Suspect]
  6. AMLODIPINE [Suspect]

REACTIONS (20)
  - POISONING [None]
  - BLOOD PRESSURE DECREASED [None]
  - SHOCK [None]
  - HEART RATE DECREASED [None]
  - ELECTROCARDIOGRAM PR PROLONGATION [None]
  - VENTRICULAR HYPERTROPHY [None]
  - COMPLETED SUICIDE [None]
  - HEPATIC ENZYME INCREASED [None]
  - BLOOD GLUCOSE DECREASED [None]
  - URINE OUTPUT DECREASED [None]
  - SUICIDAL IDEATION [None]
  - CARDIAC ARREST [None]
  - UNRESPONSIVE TO STIMULI [None]
  - TOXICITY TO VARIOUS AGENTS [None]
  - BLOOD PH DECREASED [None]
  - ISCHAEMIC HEPATITIS [None]
  - BRAIN COMPRESSION [None]
  - ARRHYTHMIA [None]
  - POOR PERIPHERAL CIRCULATION [None]
  - BRAIN OEDEMA [None]
